FAERS Safety Report 7862206-9 (Version None)
Quarter: 2011Q4

REPORT INFORMATION
  Report Type: 
  Country: None (occurrence: None)
  Receive Date: 20111027
  Receipt Date: 20101104
  Transmission Date: 20120403
  Serious: No
  Sender: FDA-Public Use
  Company Number: US-AMGEN-TCS440359

PATIENT
  Sex: Female

DRUGS (3)
  1. ENBREL [Suspect]
     Indication: PSORIASIS
     Dosage: 50 MG, 2 TIMES/WK
     Route: 058
     Dates: start: 20090601
  2. ENBREL [Suspect]
     Dosage: UNK UNK, UNK
     Dates: start: 20090601
  3. ENBREL [Suspect]
     Dosage: UNK UNK, UNK
     Dates: start: 20090601

REACTIONS (1)
  - PSORIASIS [None]
